FAERS Safety Report 20687738 (Version 2)
Quarter: 2022Q3

REPORT INFORMATION
  Report Type: Report from Study
  Country: BR (occurrence: BR)
  Receive Date: 20220408
  Receipt Date: 20220721
  Transmission Date: 20221027
  Serious: Yes (Other)
  Sender: FDA-Public Use
  Company Number: BR-NOVARTISPH-NVSC2022BR073571

PATIENT
  Age: 59 Year
  Sex: Female
  Weight: 77 kg

DRUGS (12)
  1. COSENTYX [Suspect]
     Active Substance: SECUKINUMAB
     Indication: Psoriasis
     Dosage: UNK
     Route: 065
     Dates: start: 201902
  2. COSENTYX [Suspect]
     Active Substance: SECUKINUMAB
     Indication: Psoriatic arthropathy
     Dosage: UNK, QMO (2 PENS PER MONTH)
     Route: 058
     Dates: start: 20190209, end: 20211130
  3. ARAVA [Concomitant]
     Active Substance: LEFLUNOMIDE
     Indication: Psoriatic arthropathy
     Dosage: 20 MG, QD
     Route: 048
     Dates: start: 2009
  4. LOSARTAN POTASSIUM [Concomitant]
     Active Substance: LOSARTAN POTASSIUM
     Indication: Hypertension
     Dosage: 50 MG, BID
     Route: 048
  5. LOSARTAN POTASSIUM [Concomitant]
     Active Substance: LOSARTAN POTASSIUM
     Dosage: 50 MG, BID
     Route: 048
  6. NEBITA [Concomitant]
     Indication: Hypertension
     Dosage: 5 MG, QD
     Route: 048
  7. FUROSEMIDE [Concomitant]
     Active Substance: FUROSEMIDE
     Indication: Hypertension
     Dosage: 25 MG, QD
     Route: 048
  8. ALLOPURINOL [Concomitant]
     Active Substance: ALLOPURINOL
     Indication: Product used for unknown indication
     Dosage: 300 MG, QD (CARDIOLOGIST RECOMMENDED)
     Route: 048
  9. CAFFEINE\DIPYRONE\ORPHENADRINE [Concomitant]
     Active Substance: CAFFEINE\DIPYRONE\ORPHENADRINE
     Indication: Arthralgia
     Dosage: UNK, BID
     Route: 048
  10. CAFFEINE\DIPYRONE\ORPHENADRINE [Concomitant]
     Active Substance: CAFFEINE\DIPYRONE\ORPHENADRINE
     Indication: Myalgia
  11. HISTAMIN [Concomitant]
     Indication: Rhinitis allergic
     Dosage: UNK, TID
     Route: 048
  12. PREDNISOLONE [Concomitant]
     Active Substance: PREDNISOLONE
     Indication: Psoriatic arthropathy
     Dosage: 5 MG, QD
     Route: 048

REACTIONS (32)
  - Foot deformity [Unknown]
  - Cardiac valve thickening [Unknown]
  - Syncope [Unknown]
  - COVID-19 [Recovered/Resolved with Sequelae]
  - Vomiting [Unknown]
  - Acute sinusitis [Unknown]
  - Pericardial effusion [Unknown]
  - Pyrexia [Unknown]
  - Nausea [Recovered/Resolved]
  - Retching [Recovered/Resolved]
  - Headache [Recovered/Resolved]
  - Diplopia [Unknown]
  - Hiatus hernia [Unknown]
  - Psoriasis [Not Recovered/Not Resolved]
  - Skin exfoliation [Unknown]
  - Skin lesion [Unknown]
  - Chronic sinusitis [Not Recovered/Not Resolved]
  - Concomitant disease aggravated [Not Recovered/Not Resolved]
  - Gait inability [Unknown]
  - Peripheral swelling [Unknown]
  - Illness [Unknown]
  - Rash [Unknown]
  - Memory impairment [Unknown]
  - Obstructive airways disorder [Unknown]
  - Miliaria [Unknown]
  - Hyperhidrosis [Unknown]
  - Decreased immune responsiveness [Unknown]
  - Stress [Unknown]
  - Oesophagitis [Unknown]
  - Anisocytosis [Unknown]
  - Hypochromic anaemia [Unknown]
  - Panic disorder [Unknown]

NARRATIVE: CASE EVENT DATE: 20220101
